FAERS Safety Report 4828731-X (Version None)
Quarter: 2005Q4

REPORT INFORMATION
  Report Type: 
  Country: None (occurrence: None)
  Receive Date: 20051115
  Receipt Date: 20050930
  Transmission Date: 20060501
  Serious: Yes (Hospitalization)
  Sender: FDA-Public Use
  Company Number: US-MERCK-0510USA01948

PATIENT
  Age: 79 Year
  Sex: Female
  Weight: 60 kg

DRUGS (7)
  1. VIOXX [Suspect]
     Indication: ARTHRITIS
     Route: 048
     Dates: start: 20010614, end: 20030830
  2. [THERAPY UNSPECIFIED] [Concomitant]
     Route: 065
  3. DARVOCET-N 100 [Concomitant]
     Route: 065
  4. [THERAPY UNSPECIFIED] [Concomitant]
     Route: 065
  5. GLUCOSAMINE [Concomitant]
     Route: 065
  6. MEVACOR [Concomitant]
     Route: 065
  7. TAGAMET [Concomitant]
     Route: 065

REACTIONS (1)
  - ISCHAEMIC STROKE [None]
